FAERS Safety Report 23781559 (Version 9)
Quarter: 2024Q4

REPORT INFORMATION
  Report Type: Spontaneous
  Country: CA (occurrence: CA)
  Receive Date: 20240425
  Receipt Date: 20241121
  Transmission Date: 20250114
  Serious: Yes (Other)
  Sender: CELLTRION
  Company Number: CA-CELLTRION INC.-2024CA007990

PATIENT

DRUGS (3)
  1. INFLECTRA [Suspect]
     Active Substance: INFLIXIMAB-DYYB
     Indication: Colitis ulcerative
     Dosage: 300 MG, INDUCTION WK 0, 2, 6 MAINTENANCE Q8 WKS
     Route: 042
     Dates: start: 20240321
  2. INFLECTRA [Suspect]
     Active Substance: INFLIXIMAB-DYYB
     Dosage: 300 MG, AFTER 3 WEEKS AND 6 DAYS, PRESCRIBED AFTER 2 WEEKS (INDUCTION WKS 0, 2, 6 MAINTENANCE Q8WKS)
     Route: 042
     Dates: start: 20240417, end: 20240417
  3. INFLECTRA [Suspect]
     Active Substance: INFLIXIMAB-DYYB
     Dosage: 300 MG, 17 WEEKS AND 2 DAYS (REINDUCTION W 0, 2, 6 WEEKS THEN EVERY 8 WEEKS)
     Route: 042
     Dates: start: 20240816

REACTIONS (37)
  - Vomiting [Recovered/Resolved]
  - Crying [Unknown]
  - Malaise [Unknown]
  - Hot flush [Recovered/Resolved]
  - Pruritus [Recovered/Resolved]
  - Rash [Recovering/Resolving]
  - Headache [Recovering/Resolving]
  - Nausea [Recovered/Resolved]
  - Condition aggravated [Not Recovered/Not Resolved]
  - Fracture pain [Recovered/Resolved]
  - Skin reaction [Not Recovered/Not Resolved]
  - Migraine [Recovered/Resolved]
  - Generalised oedema [Not Recovered/Not Resolved]
  - Pallor [Recovered/Resolved]
  - Nausea [Recovered/Resolved]
  - Dyspnoea [Recovered/Resolved]
  - Somnolence [Recovered/Resolved]
  - Erythema [Not Recovered/Not Resolved]
  - Arthralgia [Not Recovered/Not Resolved]
  - Pyrexia [Recovered/Resolved]
  - Viral infection [Not Recovered/Not Resolved]
  - Increased viscosity of bronchial secretion [Unknown]
  - Productive cough [Not Recovered/Not Resolved]
  - Sputum discoloured [Not Recovered/Not Resolved]
  - Rhinorrhoea [Unknown]
  - Migraine [Recovered/Resolved]
  - Alopecia [Recovered/Resolved]
  - Nausea [Recovered/Resolved]
  - Anxiety [Unknown]
  - Pruritus [Recovering/Resolving]
  - Cough [Unknown]
  - Fatigue [Unknown]
  - Nasopharyngitis [Recovering/Resolving]
  - Off label use [Unknown]
  - Off label use [Unknown]
  - Incorrect dose administered [Unknown]
  - Inappropriate schedule of product administration [Unknown]

NARRATIVE: CASE EVENT DATE: 20240101
